FAERS Safety Report 5645408-1 (Version None)
Quarter: 2008Q1

REPORT INFORMATION
  Report Type: 
  Country: None (occurrence: None)
  Receive Date: 20080229
  Receipt Date: 20070606
  Transmission Date: 20080703
  Serious: No
  Sender: FDA-Public Use
  Company Number: US-BRISTOL-MYERS SQUIBB COMPANY-13688890

PATIENT
  Age: 54 Year
  Sex: Female
  Weight: 73 kg

DRUGS (10)
  1. TAXOL [Suspect]
     Indication: CHEMOTHERAPY
     Route: 042
     Dates: start: 20070126, end: 20070330
  2. ALLERGY SHOTS [Suspect]
     Indication: IMMUNOSUPPRESSANT DRUG THERAPY
     Route: 058
     Dates: end: 20070220
  3. ALLERGY SHOTS [Suspect]
     Indication: ALLERGENIC DESENSITISATION PROCEDURE
     Route: 058
     Dates: end: 20070220
  4. HERCEPTIN [Concomitant]
  5. THYROID TAB [Concomitant]
  6. PAXIL [Concomitant]
  7. WELLBUTRIN [Concomitant]
  8. ZANTAC 150 [Concomitant]
  9. KYTRIL [Concomitant]
     Route: 042
  10. DRIXORAL [Concomitant]

REACTIONS (6)
  - ANAPHYLACTIC REACTION [None]
  - ANXIETY [None]
  - DYSPHAGIA [None]
  - HEPATIC ENZYME INCREASED [None]
  - THROAT TIGHTNESS [None]
  - URTICARIA [None]
